FAERS Safety Report 16013810 (Version 4)
Quarter: 2019Q2

REPORT INFORMATION
  Report Type: Spontaneous
  Country: BE (occurrence: BE)
  Receive Date: 20190227
  Receipt Date: 20190412
  Transmission Date: 20190711
  Serious: Yes (Hospitalization)
  Sender: FDA-Public Use
  Company Number: PHHY2019BE043335

PATIENT
  Age: 68 Year
  Sex: Female

DRUGS (5)
  1. COSENTYX [Suspect]
     Active Substance: SECUKINUMAB
     Indication: ERYTHRODERMIC PSORIASIS
     Dosage: 300 MG, UNK
     Route: 065
     Dates: start: 20170410, end: 2018
  2. COSENTYX [Suspect]
     Active Substance: SECUKINUMAB
     Dosage: UNK
     Route: 065
     Dates: start: 201807
  3. COSENTYX [Suspect]
     Active Substance: SECUKINUMAB
     Dosage: UNK
     Route: 065
     Dates: start: 20190214
  4. COSENTYX [Suspect]
     Active Substance: SECUKINUMAB
     Dosage: 300 MG, UNK
     Route: 065
     Dates: start: 20181123
  5. COSENTYX [Suspect]
     Active Substance: SECUKINUMAB
     Dosage: 300 MG, QMO
     Route: 065
     Dates: start: 20190223

REACTIONS (6)
  - Erythrodermic psoriasis [Recovered/Resolved]
  - Condition aggravated [Recovering/Resolving]
  - Scratch [Unknown]
  - Inappropriate schedule of product administration [Unknown]
  - Dermatitis exfoliative generalised [Unknown]
  - Infection [Unknown]

NARRATIVE: CASE EVENT DATE: 20180725
